FAERS Safety Report 9458999 (Version 1)
Quarter: 2013Q3

REPORT INFORMATION
  Report Type: Spontaneous
  Country: FR (occurrence: FR)
  Receive Date: 20130814
  Receipt Date: 20130814
  Transmission Date: 20140515
  Serious: Yes (Hospitalization)
  Sender: FDA-Public Use
  Company Number: FR-UCBSA-094755

PATIENT
  Age: 46 Year
  Sex: Female

DRUGS (4)
  1. CIMZIA [Suspect]
     Indication: RHEUMATOID ARTHRITIS
     Route: 058
     Dates: start: 201202, end: 20120326
  2. PAROXETINE [Concomitant]
     Dosage: 20 MG
     Route: 048
     Dates: start: 201202
  3. IXPRIM [Concomitant]
     Indication: PAIN
     Route: 048
     Dates: start: 201105
  4. TRAMADOL HYDROCHLORIDE [Concomitant]
     Indication: PAIN
     Dosage: 50 MG
     Route: 048
     Dates: start: 201202

REACTIONS (2)
  - Psoriasis [Recovering/Resolving]
  - Pyrexia [Unknown]
